FAERS Safety Report 24429677 (Version 3)
Quarter: 2025Q1

REPORT INFORMATION
  Report Type: Spontaneous
  Country: US (occurrence: US)
  Receive Date: 20241012
  Receipt Date: 20250307
  Transmission Date: 20250409
  Serious: Yes (Other)
  Sender: SANOFI AVENTIS
  Company Number: US-SA-2024SA292107

PATIENT
  Age: 42 Year
  Sex: Female

DRUGS (1)
  1. DUPIXENT [Suspect]
     Active Substance: DUPILUMAB
     Indication: Eosinophilic oesophagitis
     Dosage: 300 MG, QW
     Route: 058
     Dates: start: 20240726

REACTIONS (11)
  - Clostridium difficile infection [Not Recovered/Not Resolved]
  - Oesophageal food impaction [Unknown]
  - Swelling [Unknown]
  - Food refusal [Unknown]
  - Dysphagia [Unknown]
  - Retching [Unknown]
  - Injection site urticaria [Unknown]
  - Urinary tract infection [Recovered/Resolved]
  - Surgery [Unknown]
  - Injection site erythema [Unknown]
  - Injection site pruritus [Unknown]

NARRATIVE: CASE EVENT DATE: 20240101
